FAERS Safety Report 12860513 (Version 1)
Quarter: 2016Q4

REPORT INFORMATION
  Report Type: Report from Study
  Country: US (occurrence: US)
  Receive Date: 20161019
  Receipt Date: 20161019
  Transmission Date: 20170207
  Serious: Yes (Hospitalization)
  Sender: FDA-Public Use
  Company Number: US-EISAI MEDICAL RESEARCH-EC-2016-021348

PATIENT
  Age: 33 Year
  Sex: Female
  Weight: 64.6 kg

DRUGS (2)
  1. ERIBULIN [Suspect]
     Active Substance: ERIBULIN
     Indication: BREAST CANCER METASTATIC
     Route: 041
     Dates: start: 2016, end: 20161004
  2. POL6326 [Concomitant]
     Active Substance: INVESTIGATIONAL PRODUCT
     Dosage: UNKNOWN
     Route: 041
     Dates: start: 2016

REACTIONS (1)
  - Febrile neutropenia [Recovered/Resolved]

NARRATIVE: CASE EVENT DATE: 20161013
